FAERS Safety Report 10208589 (Version 8)
Quarter: 2015Q2

REPORT INFORMATION
  Report Type: Report from Study
  Country: AT (occurrence: AT)
  Receive Date: 20140530
  Receipt Date: 20150519
  Transmission Date: 20150821
  Serious: Yes (Hospitalization, Other)
  Sender: FDA-Public Use
  Company Number: AT-INCYTE CORPORATION-2014IN001453

PATIENT
  Age: 63 Year
  Sex: Male
  Weight: 66 kg

DRUGS (27)
  1. AQUAPHORIL [Concomitant]
     Dosage: 1 DF, QD IN THE MORNING
     Route: 065
  2. OLEOVIT D3 [Concomitant]
     Dosage: 30 DRP, QW ON FRIDAYS
     Route: 065
  3. CONCOR [Concomitant]
     Active Substance: BISOPROLOL FUMARATE
     Indication: PRODUCT USED FOR UNKNOWN INDICATION
     Dosage: UNKNOWN
  4. PANTOPRAZOL ALTAN [Concomitant]
     Dosage: 40 MG, QD IN THE MORNING
     Route: 065
  5. UROSIN [Concomitant]
     Active Substance: ALLOPURINOL
     Dosage: 300 MG, QD AT NOONTIME
     Route: 065
  6. ANTIFLAT CHEWABLE TABLET [Concomitant]
     Dosage: 42 MG, UNKNOWN
  7. EUTHYROX [Concomitant]
     Active Substance: LEVOTHYROXINE SODIUM
     Indication: PRODUCT USED FOR UNKNOWN INDICATION
     Dosage: UNKNOWN
  8. FURON [Concomitant]
     Active Substance: FUROSEMIDE
     Dosage: 40 MG, QD IN THE MORNING
     Route: 065
  9. AQUAPHORIL [Concomitant]
     Indication: PRODUCT USED FOR UNKNOWN INDICATION
     Dosage: UNKNOWN
  10. UROSIN [Concomitant]
     Active Substance: ALLOPURINOL
     Indication: PRODUCT USED FOR UNKNOWN INDICATION
     Dosage: UNKNOWN
  11. DREISACARB [Concomitant]
     Active Substance: CALCIUM CARBONATE
     Dosage: 4 DF, QD 2 IN THE MORNING, 2 IN THE EVENING
     Route: 065
  12. EXFORGE [Concomitant]
     Active Substance: AMLODIPINE BESYLATE\VALSARTAN
     Dosage: 1 DF, QD
     Route: 065
  13. CONCOR [Concomitant]
     Active Substance: BISOPROLOL FUMARATE
     Dosage: 5 MG, QD IN THE MORNING
     Route: 065
  14. NOVALGIN [Concomitant]
     Active Substance: METAMIZOLE SODIUM
     Indication: PRODUCT USED FOR UNKNOWN INDICATION
     Dosage: UNKNOWN
  15. JAKAFI [Suspect]
     Active Substance: RUXOLITINIB
     Indication: MYELOFIBROSIS
     Dosage: 5 MG, BID ( 1 IN THE MORNING, 1 IN THE EVENING)
     Route: 048
     Dates: start: 20120307
  16. EPOETIN THETA [Concomitant]
     Active Substance: ERYTHROPOIETIN
     Dosage: 1 ML, QW IN THE MORNING
     Route: 065
  17. EUTHYROX [Concomitant]
     Active Substance: LEVOTHYROXINE SODIUM
     Dosage: 125 UG, QD IN THE MORNING
     Route: 065
  18. JAKAFI [Suspect]
     Active Substance: RUXOLITINIB
     Dosage: UNK
     Route: 048
  19. EPOETIN THETA [Concomitant]
     Active Substance: ERYTHROPOIETIN
     Indication: PRODUCT USED FOR UNKNOWN INDICATION
     Dosage: UNKNOWN
  20. PANTOPRAZOL ALTAN [Concomitant]
     Indication: PRODUCT USED FOR UNKNOWN INDICATION
     Dosage: UNKNOWN
  21. JAKAFI [Suspect]
     Active Substance: RUXOLITINIB
     Dosage: UNK
     Route: 048
     Dates: start: 20140506, end: 20140514
  22. FURON [Concomitant]
     Active Substance: FUROSEMIDE
     Indication: PRODUCT USED FOR UNKNOWN INDICATION
     Dosage: UNKNOWN
  23. LITALIR [Concomitant]
     Active Substance: HYDROXYUREA
     Indication: PRODUCT USED FOR UNKNOWN INDICATION
     Route: 065
     Dates: start: 1995
  24. EXFORGE [Concomitant]
     Active Substance: AMLODIPINE BESYLATE\VALSARTAN
     Indication: PRODUCT USED FOR UNKNOWN INDICATION
     Dosage: UNKNOWN
     Route: 065
  25. DREISACARB [Concomitant]
     Active Substance: CALCIUM CARBONATE
     Indication: PRODUCT USED FOR UNKNOWN INDICATION
     Dosage: UNKNOWN
  26. NOVALGIN [Concomitant]
     Active Substance: METAMIZOLE SODIUM
     Route: 065
  27. OLEOVIT D3 [Concomitant]
     Indication: PRODUCT USED FOR UNKNOWN INDICATION
     Dosage: UNKNOWN

REACTIONS (15)
  - Haemorrhagic diathesis [Recovered/Resolved]
  - Pancytopenia [Recovered/Resolved]
  - Epistaxis [Recovered/Resolved]
  - Nasopharyngitis [Recovered/Resolved]
  - Pleural effusion [Not Recovered/Not Resolved]
  - Peripheral swelling [Recovered/Resolved]
  - Hyperkalaemia [Recovered/Resolved]
  - Haematoma [Recovered/Resolved]
  - Portal vein thrombosis [Not Recovered/Not Resolved]
  - Flatulence [Recovered/Resolved]
  - Cough [Unknown]
  - Influenza [Recovered/Resolved]
  - Ascites [Recovered/Resolved]
  - Splenomegaly [Unknown]
  - Rhinitis [Unknown]

NARRATIVE: CASE EVENT DATE: 20131002
